FAERS Safety Report 23131760 (Version 3)
Quarter: 2024Q1

REPORT INFORMATION
  Report Type: Spontaneous
  Country: JP (occurrence: JP)
  Receive Date: 20231031
  Receipt Date: 20240304
  Transmission Date: 20240410
  Serious: Yes (Death, Hospitalization, Other)
  Sender: FDA-Public Use
  Company Number: JP-MSD-M2023-04367

PATIENT
  Age: 59 Year
  Sex: Female

DRUGS (6)
  1. KEYTRUDA [Suspect]
     Active Substance: PEMBROLIZUMAB
     Indication: Cervix carcinoma stage IV
     Dosage: 200 MILLIGRAM, Q3W
     Route: 041
     Dates: start: 20230117, end: 20230508
  2. CARBOPLATIN [Concomitant]
     Active Substance: CARBOPLATIN
     Dosage: AUC5, Q3W
     Route: 041
     Dates: start: 20230117
  3. PACLITAXEL [Concomitant]
     Active Substance: PACLITAXEL
     Dosage: 175 MILLIGRAM/SQ. METER, Q3W
     Route: 041
     Dates: start: 20230117
  4. BEVACIZUMAB [Concomitant]
     Active Substance: BEVACIZUMAB
     Dosage: 15 MILLIGRAM, Q3W
     Route: 041
     Dates: start: 20230117
  5. CELESTAMINE [Concomitant]
     Active Substance: BETAMETHASONE\DEXCHLORPHENIRAMINE MALEATE
     Dosage: UNK
     Route: 048
  6. PREDONINE [Concomitant]
     Active Substance: PREDNISOLONE
     Dosage: 30MG/BODY
     Route: 048

REACTIONS (6)
  - Cytomegalovirus infection [Fatal]
  - Aspergillus infection [Fatal]
  - Colitis [Fatal]
  - Erythema multiforme [Recovering/Resolving]
  - Immune thrombocytopenia [Unknown]
  - Cortisol decreased [Recovering/Resolving]

NARRATIVE: CASE EVENT DATE: 20230101
